FAERS Safety Report 4768478-1 (Version None)
Quarter: 2005Q3

REPORT INFORMATION
  Report Type: 
  Country: None (occurrence: None)
  Receive Date: 20050914
  Receipt Date: 20050906
  Transmission Date: 20060218
  Serious: Yes (Death)
  Sender: FDA-Public Use
  Company Number: US-MERCK-0509USA00418

PATIENT
  Sex: Female

DRUGS (6)
  1. VIOXX [Suspect]
     Route: 048
  2. IMDUR [Suspect]
     Route: 048
  3. K-DUR 10 [Suspect]
     Route: 048
  4. VASOTEC RPD [Concomitant]
     Route: 048
  5. LASIX [Concomitant]
     Route: 065
  6. METAGLIP [Concomitant]
     Route: 065

REACTIONS (1)
  - CARDIAC ARREST [None]
